FAERS Safety Report 21812232 (Version 1)
Quarter: 2023Q1

REPORT INFORMATION
  Report Type: Spontaneous
  Country: SK (occurrence: SK)
  Receive Date: 20230103
  Receipt Date: 20230103
  Transmission Date: 20230417
  Serious: Yes (Hospitalization)
  Sender: FDA-Public Use
  Company Number: SK-MYLANLABS-2022M1141405

PATIENT
  Age: 59 Year
  Sex: Female

DRUGS (2)
  1. GEMCITABINE [Suspect]
     Active Substance: GEMCITABINE
     Indication: Thymic carcinoma
     Dosage: 1000 MILLIGRAM/SQ. METER, CYCLE, 2 CYCLES
     Route: 065
     Dates: start: 201907
  2. CISPLATIN [Suspect]
     Active Substance: CISPLATIN
     Indication: Thymic carcinoma
     Dosage: 75 MILLIGRAM/SQ. METER, CYCLE, 2 CYCLES
     Route: 065
     Dates: start: 201907

REACTIONS (1)
  - Drug ineffective [Unknown]
